FAERS Safety Report 7876100-0 (Version None)
Quarter: 2011Q4

REPORT INFORMATION
  Report Type: 
  Country: None (occurrence: None)
  Receive Date: 20111031
  Receipt Date: 20111024
  Transmission Date: 20120403
  Serious: Yes (Other)
  Sender: FDA-Public Use
  Company Number: FR-JNJFOC-20111012875

PATIENT

DRUGS (23)
  1. DOXORUBICIN HCL [Suspect]
     Route: 042
  2. CYCLOPHOSPHAMIDE [Suspect]
     Route: 065
  3. MESNA [Suspect]
     Route: 042
  4. ELDISINE [Suspect]
     Indication: LYMPHOMA
     Route: 065
  5. BLEOMYCIN SULFATE [Suspect]
     Route: 042
  6. MESNA [Suspect]
     Route: 042
  7. PREDNISONE [Suspect]
     Indication: LYMPHOMA
     Route: 048
  8. DOXORUBICIN HCL [Suspect]
     Indication: LYMPHOMA
     Route: 042
  9. DOXORUBICIN HCL [Suspect]
     Route: 042
  10. BLEOMYCIN SULFATE [Suspect]
     Route: 042
  11. DOXORUBICIN HCL [Suspect]
     Route: 042
  12. MESNA [Suspect]
     Indication: LYMPHOMA
     Route: 042
  13. MESNA [Suspect]
     Route: 042
  14. CYCLOPHOSPHAMIDE [Suspect]
     Indication: LYMPHOMA
     Route: 065
  15. CYCLOPHOSPHAMIDE [Suspect]
     Route: 065
  16. ELDISINE [Suspect]
     Route: 065
  17. ELDISINE [Suspect]
     Route: 065
  18. ELDISINE [Suspect]
     Route: 065
  19. CYCLOPHOSPHAMIDE [Suspect]
     Route: 065
  20. BLEOMYCIN SULFATE [Suspect]
     Route: 042
  21. BLEOMYCIN SULFATE [Suspect]
     Indication: LYMPHOMA
     Route: 042
  22. METHOTREXATE [Suspect]
     Indication: LYMPHOMA
     Route: 037
  23. NEUPOGEN [Concomitant]
     Route: 065

REACTIONS (1)
  - MYELODYSPLASTIC SYNDROME [None]
